FAERS Safety Report 4639223-5 (Version None)
Quarter: 2005Q2

REPORT INFORMATION
  Report Type: 
  Country: None (occurrence: None)
  Receive Date: 20050419
  Receipt Date: 20050414
  Transmission Date: 20051028
  Serious: Yes (Hospitalization, Other)
  Sender: FDA-Public Use
  Company Number: GB-BRISTOL-MYERS SQUIBB COMPANY-12936522

PATIENT
  Age: 3 Month
  Sex: Female
  Weight: 6 kg

DRUGS (2)
  1. VEPESID [Suspect]
     Indication: HISTIOCYTOSIS HAEMATOPHAGIC
     Route: 042
     Dates: start: 20050412, end: 20050412
  2. DEXAMETHASONE [Concomitant]

REACTIONS (4)
  - CONVULSION [None]
  - CSF TEST ABNORMAL [None]
  - CYANOSIS [None]
  - HYPERTENSION [None]
